FAERS Safety Report 4682683-4 (Version None)
Quarter: 2005Q2

REPORT INFORMATION
  Report Type: 
  Country: None (occurrence: None)
  Receive Date: 20050606
  Receipt Date: 20050527
  Transmission Date: 20051028
  Serious: Yes (Hospitalization)
  Sender: FDA-Public Use
  Company Number: FR-GLAXOSMITHKLINE-B0383093A

PATIENT
  Sex: Female
  Weight: 2.6 kg

DRUGS (5)
  1. RETROVIR [Suspect]
     Indication: ANTIVIRAL PROPHYLAXIS
     Route: 048
     Dates: start: 19971107
  2. EPIVIR [Suspect]
     Indication: ANTIVIRAL PROPHYLAXIS
     Route: 048
     Dates: start: 19971107
  3. ZIDOVUDINE [Suspect]
     Indication: ANTIVIRAL PROPHYLAXIS
     Dates: start: 19971107, end: 19971107
  4. ZIDOVUDINE [Suspect]
     Indication: HIV INFECTION
  5. EPIVIR [Suspect]
     Indication: HIV INFECTION

REACTIONS (6)
  - ANAEMIA [None]
  - BLOOD LACTIC ACID INCREASED [None]
  - DRUG EXPOSURE DURING PREGNANCY [None]
  - GLOSSITIS [None]
  - HYPOTONIA [None]
  - NEUTROPENIA [None]
